FAERS Safety Report 9594592 (Version 1)
Quarter: 2013Q3

REPORT INFORMATION
  Report Type: Spontaneous
  Country: US (occurrence: None)
  Receive Date: 20130927
  Receipt Date: 20130927
  Transmission Date: 20140515
  Serious: No
  Sender: FDA-Public Use
  Company Number: CABO-13002925

PATIENT
  Age: 72 Year
  Sex: Male
  Weight: 112 kg

DRUGS (10)
  1. COMETRIQ (CABOZANTINIB) CAPSULE [Suspect]
     Indication: THYROID CANCER
     Dosage: 140 MG, QD, ORAL
     Route: 048
     Dates: start: 20130611, end: 20130701
  2. COMETRIQ (CABOZANTINIB) CAPSULE [Suspect]
     Indication: METASTASES TO LIVER
     Dosage: 140 MG, QD, ORAL
     Route: 048
     Dates: start: 20130611, end: 20130701
  3. JANUVIA (SITAGLIPTIN PHOSPHATE) [Concomitant]
  4. DOXAZOSIN (DOXAZOSIN) [Concomitant]
  5. CALCIUM (CALCIUM) [Concomitant]
  6. PRAVASTATIN (PRAVASTATIN) [Concomitant]
  7. LEVOTHYROXINE (LEVOTHYROXINE) [Concomitant]
  8. CALCITROL (CALCITROL) [Concomitant]
  9. AMLODIPINE (AMLODIPINE) [Concomitant]
  10. ASPIRIN (ACETYLSALICYLIC ACID) [Concomitant]

REACTIONS (8)
  - Feeling cold [None]
  - Choking sensation [None]
  - Blister [None]
  - Skin ulcer [None]
  - Skin fissures [None]
  - Dysphagia [None]
  - Fatigue [None]
  - Oropharyngeal pain [None]
